FAERS Safety Report 9770987 (Version 2)
Quarter: 2013Q4

REPORT INFORMATION
  Report Type: Spontaneous
  Country: US (occurrence: US)
  Receive Date: 20131218
  Receipt Date: 20131218
  Transmission Date: 20140711
  Serious: No
  Sender: FDA-Public Use
  Company Number: US-MYLANLABS-2013S1013562

PATIENT
  Age: 18 Year
  Sex: Male
  Weight: 68 kg

DRUGS (2)
  1. ROCURONIUM BROMIDE INJECTION [Suspect]
     Indication: SEDATION
     Route: 042
  2. ROCURONIUM BROMIDE INJECTION [Suspect]
     Indication: SEDATION
     Route: 042

REACTIONS (1)
  - Drug ineffective [Not Recovered/Not Resolved]
